FAERS Safety Report 13372906 (Version 1)
Quarter: 2017Q1

REPORT INFORMATION
  Report Type: Spontaneous
  Country: US (occurrence: US)
  Receive Date: 20170325
  Receipt Date: 20170325
  Transmission Date: 20170429
  Serious: Yes (Death)
  Sender: FDA-Public Use
  Company Number: None

PATIENT
  Age: 83 Year
  Sex: Female
  Weight: 104 kg

DRUGS (17)
  1. LOVASTATIN (MEVACOR) [Concomitant]
  2. SPIRONOLACTONE (ALDACTONE) [Concomitant]
  3. COLCHICINE (COLOCRYS) [Concomitant]
  4. PROBIOTIC [Concomitant]
     Active Substance: PROBIOTICS NOS
  5. ALTACE [Concomitant]
     Active Substance: RAMIPRIL
  6. VITAMIN B-12 (CYANOCOBALAMIN) [Concomitant]
  7. ASPIRIN. [Suspect]
     Active Substance: ASPIRIN
     Indication: CORONARY ARTERY DISEASE
     Route: 048
  8. SIMETHICONE (DIMETHICONE) [Concomitant]
     Active Substance: DIMETHICONE
  9. PROCHLORPERAZINE (COMPAZINE) [Concomitant]
  10. COENZYME Q10 (COQ10) [Concomitant]
  11. ICHOLECALCIFEROL (VITAMIN D3) [Concomitant]
  12. LASIX [Concomitant]
     Active Substance: FUROSEMIDE
  13. ALLOPURINOL (ZYLOPRIM) [Concomitant]
  14. METOPROLOL (TOPROL-XL) [Concomitant]
  15. WARFARIN [Suspect]
     Active Substance: WARFARIN
     Indication: CORONARY ARTERY DISEASE
     Route: 048
  16. ISOSORBIDE MONONITRATE (IMDUR) [Concomitant]
  17. MULTIPLE VITAMINS-MINERALS [Concomitant]

REACTIONS (8)
  - Pulse abnormal [None]
  - Gastrointestinal haemorrhage [None]
  - Dyspnoea [None]
  - Abdominal discomfort [None]
  - Unresponsive to stimuli [None]
  - Chest discomfort [None]
  - Fatigue [None]
  - Pyrexia [None]

NARRATIVE: CASE EVENT DATE: 20160424
